FAERS Safety Report 16637077 (Version 1)
Quarter: 2019Q3

REPORT INFORMATION
  Report Type: Spontaneous
  Country: US (occurrence: US)
  Receive Date: 20190614
  Receipt Date: 20190614
  Transmission Date: 20191004
  Serious: No
  Sender: FDA-Public Use
  Company Number: None

PATIENT
  Age: 61 Year
  Sex: Female
  Weight: 51.71 kg

DRUGS (1)
  1. VENLAFAXINE 75MG [Suspect]
     Active Substance: VENLAFAXINE HYDROCHLORIDE
     Indication: ANXIETY
     Route: 048
     Dates: start: 2013

REACTIONS (5)
  - Headache [None]
  - Mood altered [None]
  - Nausea [None]
  - Anger [None]
  - Product substitution issue [None]
